FAERS Safety Report 4874824-0 (Version None)
Quarter: 2006Q1

REPORT INFORMATION
  Report Type: 
  Country: None (occurrence: None)
  Receive Date: 20060109
  Receipt Date: 20051227
  Transmission Date: 20060701
  Serious: Yes (Death)
  Sender: FDA-Public Use
  Company Number: FR-ABBOTT-05P-056-0320790-00

PATIENT
  Age: 57 Year
  Sex: Female

DRUGS (6)
  1. DEPAKINE CHRONO TABLETS [Suspect]
     Indication: EPILEPSY
     Route: 048
     Dates: start: 20051117
  2. CLONAZEPAM [Suspect]
     Indication: EPILEPSY
     Route: 048
     Dates: start: 20051117
  3. PROPRANOLOL [Suspect]
     Indication: TACHYCARDIA
     Route: 048
     Dates: start: 20051113
  4. RISPERIDONE [Suspect]
     Indication: MENTAL DISORDER
     Dates: start: 20051117
  5. HALOPERIDOL [Concomitant]
     Indication: DRUG USE FOR UNKNOWN INDICATION
     Dates: start: 20051113, end: 20051116
  6. LOXAPINE SUCCINATE [Concomitant]
     Dates: start: 20051113, end: 20051116

REACTIONS (1)
  - SUDDEN DEATH [None]
